FAERS Safety Report 22193303 (Version 4)
Quarter: 2023Q2

REPORT INFORMATION
  Report Type: Spontaneous
  Country: US (occurrence: US)
  Receive Date: 20230410
  Receipt Date: 20230630
  Transmission Date: 20230721
  Serious: Yes (Other)
  Sender: FDA-Public Use
  Company Number: US-PFIZER INC-PV202300062227

PATIENT
  Age: 13 Year
  Sex: Male
  Weight: 48.99 kg

DRUGS (2)
  1. SOMATROPIN [Suspect]
     Active Substance: SOMATROPIN
     Indication: Growth hormone deficiency
     Dosage: 1.4 MG
     Dates: start: 20230217
  2. SOMATROPIN [Suspect]
     Active Substance: SOMATROPIN
     Dosage: EVERY NIGHT
     Route: 058
     Dates: start: 20230217

REACTIONS (5)
  - Coeliac disease [Unknown]
  - Pain in extremity [Unknown]
  - Wrong technique in product usage process [Unknown]
  - Product dose omission issue [Unknown]
  - Product supply issue [Unknown]
